FAERS Safety Report 5280825-3 (Version None)
Quarter: 2007Q1

REPORT INFORMATION
  Report Type: 
  Country: None (occurrence: None)
  Receive Date: 20070329
  Receipt Date: 20070318
  Transmission Date: 20070707
  Serious: Yes (Other)
  Sender: FDA-Public Use
  Company Number: US-PFIZER INC-2007021833

PATIENT
  Sex: Male
  Weight: 88.9 kg

DRUGS (10)
  1. LYRICA [Suspect]
     Indication: DIABETIC NEUROPATHY
  2. TOPROL-XL [Concomitant]
  3. ACETYLSALICYLIC ACID SRT [Concomitant]
  4. LISINOPRIL [Concomitant]
  5. ZETIA [Concomitant]
  6. ACIPHEX [Concomitant]
  7. TRICOR [Concomitant]
  8. LIPITOR [Concomitant]
  9. AMARYL [Concomitant]
  10. FISH OIL [Concomitant]

REACTIONS (2)
  - CATARACT [None]
  - VISUAL DISTURBANCE [None]
